FAERS Safety Report 11227620 (Version 1)
Quarter: 2015Q2

REPORT INFORMATION
  Report Type: Spontaneous
  Country: US (occurrence: None)
  Receive Date: 20150626
  Receipt Date: 20150626
  Transmission Date: 20150821
  Serious: No
  Sender: FDA-Public Use
  Company Number: None

PATIENT
  Age: 65 Year
  Sex: Female
  Weight: 56.25 kg

DRUGS (9)
  1. GABAPENTIN. [Concomitant]
     Active Substance: GABAPENTIN
  2. DULOXETINE [Concomitant]
     Active Substance: DULOXETINE
  3. ZYRTEC [Concomitant]
     Active Substance: CETIRIZINE HYDROCHLORIDE
  4. MONTELUKAST [Concomitant]
     Active Substance: MONTELUKAST SODIUM
  5. DULOXETINE 30MG LUPIN LIMITED [Suspect]
     Active Substance: DULOXETINE
     Indication: NEURALGIA
     Dosage: TWO 30MG CAPSULES ONCE DAILY
     Route: 048
     Dates: start: 20150508, end: 20150510
  6. DOCUSATE SODIUM. [Concomitant]
     Active Substance: DOCUSATE SODIUM
  7. TRAMADOL [Concomitant]
     Active Substance: TRAMADOL
  8. VITAMIN C [Concomitant]
     Active Substance: ASCORBIC ACID
  9. PROBIOTICS [Concomitant]
     Active Substance: PROBIOTICS NOS

REACTIONS (1)
  - Drug withdrawal syndrome [None]

NARRATIVE: CASE EVENT DATE: 20150508
